FAERS Safety Report 14853351 (Version 1)
Quarter: 2018Q2

REPORT INFORMATION
  Report Type: Spontaneous
  Country: DE (occurrence: DE)
  Receive Date: 20180507
  Receipt Date: 20180507
  Transmission Date: 20180711
  Serious: Yes (Other)
  Sender: FDA-Public Use
  Company Number: DE-DRREDDYS-GER/GER/18/0098614

PATIENT
  Age: 89 Year
  Sex: Female
  Weight: 49 kg

DRUGS (5)
  1. RAMIPRIL. [Suspect]
     Active Substance: RAMIPRIL
     Indication: PRODUCT USED FOR UNKNOWN INDICATION
     Dosage: UNK
     Route: 048
  2. XARELTO [Concomitant]
     Active Substance: RIVAROXABAN
  3. BISOPROLOL [Concomitant]
     Active Substance: BISOPROLOL
     Indication: PRODUCT USED FOR UNKNOWN INDICATION
  4. RAMIPRIL. [Suspect]
     Active Substance: RAMIPRIL
  5. DEMADEX [Concomitant]
     Active Substance: TORSEMIDE
     Indication: PRODUCT USED FOR UNKNOWN INDICATION
     Dosage: IF NEEDED, MAYBE IN EVEN IN THE EVENING

REACTIONS (5)
  - Pulmonary embolism [Unknown]
  - Chronic obstructive pulmonary disease [Unknown]
  - Cardiac failure [Unknown]
  - Bronchiectasis [Unknown]
  - Pneumonia [Unknown]
